FAERS Safety Report 10014815 (Version 3)
Quarter: 2014Q1

REPORT INFORMATION
  Report Type: Spontaneous
  Country: JP (occurrence: JP)
  Receive Date: 20140317
  Receipt Date: 20140328
  Transmission Date: 20141002
  Serious: Yes (Hospitalization)
  Sender: FDA-Public Use
  Company Number: PHHY2014JP031471

PATIENT
  Age: 67 Year
  Sex: Female

DRUGS (1)
  1. GLIVEC [Suspect]
     Indication: GASTROINTESTINAL STROMAL TUMOUR
     Dosage: 400 MG, DAILY
     Route: 048
     Dates: start: 20120329

REACTIONS (6)
  - Pleurisy [Recovered/Resolved]
  - Infectious pleural effusion [Recovered/Resolved]
  - Pleural effusion [Recovered/Resolved]
  - Chest pain [Recovered/Resolved]
  - Hyperthermia [Recovered/Resolved]
  - Tumour necrosis [Recovering/Resolving]
